FAERS Safety Report 6961526-X (Version None)
Quarter: 2010Q3

REPORT INFORMATION
  Report Type: 
  Country: None (occurrence: None)
  Receive Date: 20100901
  Receipt Date: 20100823
  Transmission Date: 20110219
  Serious: Yes (Other)
  Sender: FDA-Public Use
  Company Number: GXKR2010FR09436

PATIENT
  Sex: Female

DRUGS (11)
  1. PACLITAXEL SANDOZ (NGX) [Suspect]
     Indication: OVARIAN EPITHELIAL CANCER
     Dosage: 240 MG, UNK
     Route: 051
     Dates: start: 20100708
  2. METHYLPREDNISOLONE [Concomitant]
     Dosage: UNK MG, UNK
  3. ONDANSETRON [Concomitant]
  4. RANITIDINE HCL [Concomitant]
  5. POLARAMINE [Concomitant]
  6. TENORMIN [Concomitant]
  7. ZANIDIP [Concomitant]
  8. KARDEGIC [Concomitant]
     Route: 048
  9. CRESTOR [Concomitant]
  10. BONIVA [Concomitant]
  11. ESOMEPRAZOLE MAGNESIUM [Concomitant]

REACTIONS (3)
  - BONE PAIN [None]
  - MUSCLE SPASMS [None]
  - NAUSEA [None]
